FAERS Safety Report 6402438-X (Version None)
Quarter: 2009Q4

REPORT INFORMATION
  Report Type: 
  Country: None (occurrence: None)
  Receive Date: 20091015
  Receipt Date: 20091007
  Transmission Date: 20100525
  Serious: Yes (Other)
  Sender: FDA-Public Use
  Company Number: TR-ELI_LILLY_AND_COMPANY-TR200910001663

PATIENT
  Age: 39 Year
  Sex: Female

DRUGS (2)
  1. HUMULIN R [Suspect]
     Indication: GESTATIONAL DIABETES
     Dosage: 4 IU, 3/D
     Route: 058
     Dates: start: 20090601, end: 20090915
  2. HUMULIN N [Suspect]
     Indication: GESTATIONAL DIABETES
     Dosage: 6 IU, EACH EVENING
     Route: 058
     Dates: start: 20090601, end: 20090915

REACTIONS (3)
  - DRUG EXPOSURE DURING PREGNANCY [None]
  - ECLAMPSIA [None]
  - PREMATURE LABOUR [None]
